FAERS Safety Report 16973937 (Version 2)
Quarter: 2019Q4

REPORT INFORMATION
  Report Type: Report from Study
  Country: US (occurrence: US)
  Receive Date: 20191030
  Receipt Date: 20191111
  Transmission Date: 20200122
  Serious: Yes (Other)
  Sender: FDA-Public Use
  Company Number: US-ROCHE-2448339

PATIENT
  Age: 72 Year
  Sex: Female
  Weight: 64.24 kg

DRUGS (2)
  1. LISINOPRIL. [Concomitant]
     Active Substance: LISINOPRIL
     Indication: BLOOD PRESSURE MEASUREMENT
     Route: 048
  2. OCREVUS [Suspect]
     Active Substance: OCRELIZUMAB
     Indication: PRIMARY PROGRESSIVE MULTIPLE SCLEROSIS
     Dosage: 10/OCT/2019
     Route: 042
     Dates: start: 20171031

REACTIONS (16)
  - Abdominal distension [Unknown]
  - Fatigue [Recovered/Resolved]
  - Joint swelling [Unknown]
  - Abdominal pain upper [Unknown]
  - Pain in extremity [Recovered/Resolved]
  - Movement disorder [Unknown]
  - Malignant melanoma [Recovered/Resolved]
  - Neuralgia [Unknown]
  - Pollakiuria [Recovered/Resolved]
  - Multiple sclerosis relapse [Unknown]
  - Peripheral swelling [Unknown]
  - Hypoaesthesia [Unknown]
  - Ear haemorrhage [Recovered/Resolved]
  - Hypertension [Recovered/Resolved]
  - Headache [Unknown]
  - Ear pain [Recovered/Resolved]

NARRATIVE: CASE EVENT DATE: 201906
